FAERS Safety Report 5694147-X (Version None)
Quarter: 2008Q2

REPORT INFORMATION
  Report Type: 
  Country: None (occurrence: None)
  Receive Date: 20080402
  Receipt Date: 20080326
  Transmission Date: 20081010
  Serious: Yes (Hospitalization)
  Sender: FDA-Public Use
  Company Number: 163-21880-08031767

PATIENT
  Age: 65 Year
  Sex: Female

DRUGS (2)
  1. REVLIMID [Suspect]
     Indication: CHRONIC LYMPHOCYTIC LEUKAEMIA
     Dosage: 5 MG, DAILY 28/28 DAYS, ORAL, 25 MG, EVERY OTHER DAY X 2 WEEKS, ORAL
     Route: 048
     Dates: start: 20080214, end: 20080302
  2. REVLIMID [Suspect]
     Indication: CHRONIC LYMPHOCYTIC LEUKAEMIA
     Dosage: 5 MG, DAILY 28/28 DAYS, ORAL, 25 MG, EVERY OTHER DAY X 2 WEEKS, ORAL
     Route: 048
     Dates: start: 20080316

REACTIONS (1)
  - VIRAL INFECTION [None]
